FAERS Safety Report 9188003 (Version 1)
Quarter: 2013Q1

REPORT INFORMATION
  Report Type: Spontaneous
  Country: US (occurrence: US)
  Receive Date: 20130325
  Receipt Date: 20130325
  Transmission Date: 20140127
  Serious: No
  Sender: FDA-Public Use
  Company Number: US-MYLANLABS-2012S1024819

PATIENT
  Age: 61 Year
  Sex: Female
  Weight: 83.46 kg

DRUGS (4)
  1. OXYCODONE AND ACETAMINOPHEN [Suspect]
     Indication: BACK PAIN
     Route: 048
     Dates: start: 2007
  2. FENTANYL TRANSDERMAL SYSTEM [Suspect]
     Indication: BACK PAIN
     Dosage: Q72H
     Route: 062
     Dates: start: 2010
  3. OXYCONTIN [Suspect]
     Indication: BACK PAIN
     Route: 048
     Dates: start: 201202
  4. SOMA [Concomitant]
     Indication: MUSCLE RELAXANT THERAPY

REACTIONS (3)
  - Drug ineffective [Not Recovered/Not Resolved]
  - Back pain [Not Recovered/Not Resolved]
  - Application site discolouration [Not Recovered/Not Resolved]
